APPROVED DRUG PRODUCT: PRAVASTATIN SODIUM
Active Ingredient: PRAVASTATIN SODIUM
Strength: 20MG
Dosage Form/Route: TABLET;ORAL
Application: A076714 | Product #002 | TE Code: AB
Applicant: DR REDDYS LABORATORIES INC
Approved: Oct 23, 2006 | RLD: No | RS: No | Type: RX